FAERS Safety Report 7134348-7 (Version None)
Quarter: 2010Q4

REPORT INFORMATION
  Report Type: 
  Country: None (occurrence: None)
  Receive Date: 20101203
  Receipt Date: 20101124
  Transmission Date: 20110411
  Serious: Yes (Other)
  Sender: FDA-Public Use
  Company Number: JP-JNJFOC-20100903164

PATIENT
  Sex: Male

DRUGS (10)
  1. TOPIRAMATE [Suspect]
     Indication: EPILEPSY
     Route: 048
  2. TOPIRAMATE [Suspect]
     Route: 048
  3. TOPIRAMATE [Suspect]
     Route: 048
  4. TOPIRAMATE [Suspect]
     Route: 048
  5. TOPIRAMATE [Suspect]
     Route: 048
  6. TEGRETOL [Concomitant]
     Indication: EPILEPSY
     Route: 048
  7. TEGRETOL [Concomitant]
     Route: 048
  8. TEGRETOL [Concomitant]
     Route: 048
  9. CORTRIL [Concomitant]
     Indication: ADRENOCORTICAL INSUFFICIENCY ACUTE
     Route: 048
  10. CORTRIL [Concomitant]
     Route: 048

REACTIONS (3)
  - ADRENAL INSUFFICIENCY [None]
  - ALOPECIA [None]
  - WHITE BLOOD CELL COUNT DECREASED [None]
